FAERS Safety Report 5330647-X (Version None)
Quarter: 2007Q2

REPORT INFORMATION
  Report Type: 
  Country: None (occurrence: None)
  Receive Date: 20070516
  Receipt Date: 20070503
  Transmission Date: 20071010
  Serious: Yes (Other)
  Sender: FDA-Public Use
  Company Number: 2007319503

PATIENT
  Sex: Female
  Weight: 62.1 kg

DRUGS (2)
  1. BENADRYL [Suspect]
     Indication: INSOMNIA
     Dosage: 1 TO 3 TEASPOON ONCE AT NIGHT AS NEEDED, ORAL
     Route: 048
  2. VERAPAMIL [Concomitant]

REACTIONS (1)
  - AMNESIA [None]
